FAERS Safety Report 5320986-0 (Version None)
Quarter: 2007Q2

REPORT INFORMATION
  Report Type: 
  Country: None (occurrence: None)
  Receive Date: 20070510
  Receipt Date: 20070501
  Transmission Date: 20071010
  Serious: Yes (Other)
  Sender: FDA-Public Use
  Company Number: PHEH2007US06684

PATIENT
  Sex: Male

DRUGS (1)
  1. ZELNORM [Suspect]

REACTIONS (4)
  - DIZZINESS [None]
  - OESOPHAGEAL CARCINOMA [None]
  - PROSTATE EXAMINATION ABNORMAL [None]
  - SURGERY [None]
